FAERS Safety Report 15563558 (Version 1)
Quarter: 2018Q4

REPORT INFORMATION
  Report Type: Spontaneous
  Country: US (occurrence: US)
  Receive Date: 20181029
  Receipt Date: 20181029
  Transmission Date: 20190205
  Serious: No
  Sender: FDA-Public Use
  Company Number: US-B.I. PHARMACEUTICALS,INC./RIDGEFIELD-2018-BI-051288

PATIENT
  Age: 58 Year
  Sex: Female

DRUGS (1)
  1. SPIRIVA [Suspect]
     Active Substance: TIOTROPIUM BROMIDE MONOHYDRATE
     Indication: CHRONIC OBSTRUCTIVE PULMONARY DISEASE
     Dosage: DIALY;  FORM STRENGTH: 18 MCG; FORMULATION:CAPSULE ACTION(S) TAKEN WITH PRODUCT:DRUG WITHDRAWN
     Route: 055
     Dates: start: 20181008, end: 20181012

REACTIONS (5)
  - Dizziness [Recovered/Resolved]
  - Cough [Recovered/Resolved]
  - Balance disorder [Recovered/Resolved]
  - Wheezing [Recovered/Resolved]
  - Chest discomfort [Recovered/Resolved]

NARRATIVE: CASE EVENT DATE: 20181008
